FAERS Safety Report 8202212-8 (Version None)
Quarter: 2012Q1

REPORT INFORMATION
  Report Type: 
  Country: None (occurrence: None)
  Receive Date: 20120312
  Receipt Date: 20120308
  Transmission Date: 20120608
  Serious: Yes (Other)
  Sender: FDA-Public Use
  Company Number: JP-PFIZER INC-2012047514

PATIENT
  Age: 80 Year
  Sex: Female

DRUGS (1)
  1. CELECOXIB [Suspect]
     Indication: BACK PAIN
     Dosage: 200 MG, 2X/DAY
     Route: 048
     Dates: start: 20120130, end: 20120213

REACTIONS (1)
  - DRUG ERUPTION [None]
